FAERS Safety Report 10141905 (Version 1)
Quarter: 2014Q2

REPORT INFORMATION
  Report Type: Spontaneous
  Country: SE (occurrence: SE)
  Receive Date: 20140429
  Receipt Date: 20140429
  Transmission Date: 20141212
  Serious: Yes (Hospitalization, Other)
  Sender: FDA-Public Use
  Company Number: PHHY2014SE050911

PATIENT
  Sex: Female

DRUGS (3)
  1. RITALIN [Suspect]
     Indication: ATTENTION DEFICIT/HYPERACTIVITY DISORDER
     Dosage: 20 MG, (1 DF IN MORNING)
     Dates: start: 201307
  2. RITALIN [Suspect]
     Indication: OFF LABEL USE
     Dosage: 60 MG, (2 DF IN MORNING, 1 DF IN AFTERNOON AND 10 MG TABLET AT NIGHT)
     Dates: start: 201308
  3. RITALIN [Suspect]
     Dosage: 90 MG, (2 DF IN MORNING, 2 DF IN AFTERNOON AND 10 MG TABLET AT NIGHT)
     Dates: start: 2013

REACTIONS (7)
  - Psychotic disorder [Recovered/Resolved]
  - Paranoia [Recovered/Resolved]
  - Confusional state [Recovered/Resolved]
  - Hallucination, auditory [Recovered/Resolved]
  - Cholelithiasis [Recovered/Resolved]
  - Head discomfort [Unknown]
  - Drug ineffective [Unknown]
